FAERS Safety Report 8503419-2 (Version None)
Quarter: 2012Q3

REPORT INFORMATION
  Report Type: 
  Country: None (occurrence: None)
  Receive Date: 20120711
  Receipt Date: 20120704
  Transmission Date: 20120928
  Serious: Yes (Other)
  Sender: FDA-Public Use
  Company Number: US-ASTRAZENECA-2012SE36404

PATIENT
  Age: 60 Year
  Sex: Female
  Weight: 72.6 kg

DRUGS (9)
  1. IMURAN [Concomitant]
     Indication: SYSTEMIC LUPUS ERYTHEMATOSUS
  2. MUCINEX DM [Concomitant]
     Dosage: TWO TIMES A DAY
  3. ASPIRIN [Concomitant]
  4. XANAX [Concomitant]
  5. KETOROLAC TROMETHAMINE [Concomitant]
     Dosage: DAILY
  6. BESIVANCE [Concomitant]
     Dosage: DAILY
  7. PREDNISONE [Concomitant]
     Indication: CHRONIC OBSTRUCTIVE PULMONARY DISEASE
  8. PREDNISONE DROP [Concomitant]
     Indication: CATARACT OPERATION
     Dosage: DAILY
  9. SYMBICORT [Suspect]
     Indication: CHRONIC OBSTRUCTIVE PULMONARY DISEASE
     Dosage: 320 MCG TWO TIMES A DAY
     Route: 055
     Dates: start: 20091201

REACTIONS (2)
  - CATARACT [None]
  - SYSTEMIC LUPUS ERYTHEMATOSUS [None]
